FAERS Safety Report 12302422 (Version 1)
Quarter: 2016Q2

REPORT INFORMATION
  Report Type: Spontaneous
  Country: GB (occurrence: GB)
  Receive Date: 20160425
  Receipt Date: 20160425
  Transmission Date: 20160815
  Serious: Yes (Death, Hospitalization)
  Sender: FDA-Public Use
  Company Number: GB-TEVA-653399ACC

PATIENT
  Age: 75 Year
  Sex: Male
  Weight: 84 kg

DRUGS (14)
  1. BETAHISTINE [Concomitant]
     Active Substance: BETAHISTINE
  2. EPLERENONE. [Concomitant]
     Active Substance: EPLERENONE
  3. LANSOPRAZOLE. [Concomitant]
     Active Substance: LANSOPRAZOLE
  4. ROSUVASTATIN. [Concomitant]
     Active Substance: ROSUVASTATIN
  5. TIOTROPIUM [Concomitant]
     Active Substance: TIOTROPIUM
  6. DUORESP SPIROMAX [Concomitant]
     Active Substance: BUDESONIDE\FORMOTEROL
  7. WARFARIN [Suspect]
     Active Substance: WARFARIN
     Indication: ATRIAL FIBRILLATION
     Dosage: ACCORDING TO INTERNATIONAL NORMALISED RATIO (INR), LATEST DOSE 4-5MG DAILY
     Route: 048
     Dates: start: 20150915, end: 20160328
  8. GLIMEPIRIDE. [Concomitant]
     Active Substance: GLIMEPIRIDE
  9. BUMETANIDE. [Concomitant]
     Active Substance: BUMETANIDE
  10. RAMIPRIL. [Concomitant]
     Active Substance: RAMIPRIL
  11. GAVISCON ADVANCE [Concomitant]
     Active Substance: POTASSIUM BICARBONATE\SODIUM ALGINATE
  12. GLUCOPHAGE XR [Concomitant]
     Active Substance: METFORMIN HYDROCHLORIDE
  13. VENTOLIN [Concomitant]
     Active Substance: ALBUTEROL SULFATE
  14. LANTUS [Concomitant]
     Active Substance: INSULIN GLARGINE

REACTIONS (2)
  - Cerebral haemorrhage [Fatal]
  - Circulatory collapse [Not Recovered/Not Resolved]

NARRATIVE: CASE EVENT DATE: 20160327
